FAERS Safety Report 8936348 (Version 1)
Quarter: 2012Q4

REPORT INFORMATION
  Report Type: 
  Country: DE (occurrence: DE)
  Receive Date: 20121130
  Receipt Date: 20121130
  Transmission Date: 20130627
  Serious: Yes (Other)
  Sender: FDA-Public Use
  Company Number: DE-ELI_LILLY_AND_COMPANY-DE201211007009

PATIENT
  Sex: Female

DRUGS (4)
  1. FORSTEO [Suspect]
     Indication: OSTEOPOROSIS
     Dosage: UNK
     Route: 058
     Dates: start: 20121111
  2. DECORTIN [Concomitant]
     Dosage: 2 mg, UNK
  3. DECORTIN [Concomitant]
     Dosage: 20 mg, UNK
     Dates: start: 20121119
  4. DECORTIN [Concomitant]
     Dosage: 30 mg, UNK
     Dates: start: 20121120

REACTIONS (1)
  - Gastrointestinal haemorrhage [Not Recovered/Not Resolved]
